FAERS Safety Report 23615800 (Version 3)
Quarter: 2024Q3

REPORT INFORMATION
  Report Type: Spontaneous
  Country: US (occurrence: US)
  Receive Date: 20240311
  Receipt Date: 20240813
  Transmission Date: 20241016
  Serious: No
  Sender: BRISTOL MYERS SQUIBB
  Company Number: US-BRISTOL-MYERS SQUIBB COMPANY-2024-038415

PATIENT
  Age: 84 Year
  Sex: Male
  Weight: 95.71 kg

DRUGS (1)
  1. REVLIMID [Suspect]
     Active Substance: LENALIDOMIDE
     Indication: Plasma cell myeloma
     Route: 048

REACTIONS (9)
  - Red blood cell count decreased [Unknown]
  - Feeling abnormal [Unknown]
  - Asthenia [Unknown]
  - Stomatitis [Unknown]
  - Back pain [Unknown]
  - Asthenia [Unknown]
  - Abdominal discomfort [Unknown]
  - Tremor [Unknown]
  - Dyspnoea exertional [Unknown]
